FAERS Safety Report 4767796-0 (Version None)
Quarter: 2005Q3

REPORT INFORMATION
  Report Type: 
  Country: None (occurrence: None)
  Receive Date: 20050912
  Receipt Date: 20050901
  Transmission Date: 20060218
  Serious: Yes (Other)
  Sender: FDA-Public Use
  Company Number: HQWYE003218AUG05

PATIENT
  Age: 61 Year
  Sex: Female

DRUGS (7)
  1. PANTOZOL (PANTOPRAZOLE, TABLET, DELAYED RELEASE) [Suspect]
     Indication: GASTROENTERITIS
     Dosage: 40 MG 2X PER 1 DAY ORAL
     Route: 048
     Dates: start: 20050709, end: 20050715
  2. PANTOZOL (PANTOPRAZOLE, TABLET, DELAYED RELEASE) [Suspect]
     Indication: GASTROENTERITIS HELICOBACTER
     Dosage: 40 MG 2X PER 1 DAY ORAL
     Route: 048
     Dates: start: 20050709, end: 20050715
  3. PANTOZOL (PANTOPRAZOLE, TABLET, DELAYED RELEASE) [Suspect]
     Indication: HELICOBACTER GASTRITIS
     Dosage: 40 MG 2X PER 1 DAY ORAL
     Route: 048
     Dates: start: 20050709, end: 20050715
  4. AMOXICILLIN [Suspect]
     Indication: GASTROENTERITIS HELICOBACTER
     Dosage: 1000 MG 2X PER 1 DAY ORAL
     Route: 048
     Dates: start: 20050709, end: 20050715
  5. AMOXICILLIN [Suspect]
     Indication: HELICOBACTER INFECTION
     Dosage: 1000 MG 2X PER 1 DAY ORAL
     Route: 048
     Dates: start: 20050709, end: 20050715
  6. CLARITHROMYCIN [Suspect]
     Indication: GASTROENTERITIS HELICOBACTER
     Dosage: 500 MG 2X PER 1 DAY ORAL
     Route: 048
     Dates: start: 20050709, end: 20050715
  7. CLARITHROMYCIN [Suspect]
     Indication: HELICOBACTER GASTRITIS
     Dosage: 500 MG 2X PER 1 DAY ORAL
     Route: 048
     Dates: start: 20050709, end: 20050715

REACTIONS (3)
  - FACE OEDEMA [None]
  - PRURITUS [None]
  - RASH [None]
